FAERS Safety Report 13626217 (Version 1)
Quarter: 2017Q2

REPORT INFORMATION
  Report Type: Spontaneous
  Country: US (occurrence: US)
  Receive Date: 20170607
  Receipt Date: 20170607
  Transmission Date: 20170830
  Serious: Yes (Hospitalization, Disabling)
  Sender: FDA-Public Use
  Company Number: None

PATIENT
  Age: 34 Year
  Sex: Female
  Weight: 64.35 kg

DRUGS (7)
  1. CLARITIN [Concomitant]
     Active Substance: LORATADINE
  2. METRONIDAZOLE. [Suspect]
     Active Substance: METRONIDAZOLE
     Indication: CLOSTRIDIUM DIFFICILE INFECTION
     Dosage: ?          QUANTITY:42 TABLET(S);?
     Route: 048
     Dates: start: 20150608, end: 20150615
  3. IBUPROFEN. [Concomitant]
     Active Substance: IBUPROFEN
  4. SUDAFED [Concomitant]
     Active Substance: PSEUDOEPHEDRINE HYDROCHLORIDE
  5. KEFIR [Concomitant]
  6. MAGNESIUM [Concomitant]
     Active Substance: MAGNESIUM
  7. MIRTAZAPINE. [Concomitant]
     Active Substance: MIRTAZAPINE

REACTIONS (21)
  - Anxiety [None]
  - Body temperature fluctuation [None]
  - Ataxia [None]
  - Asthenia [None]
  - Palpitations [None]
  - Insomnia [None]
  - Toxic encephalopathy [None]
  - Dysarthria [None]
  - Dizziness [None]
  - Feeling abnormal [None]
  - Dyspnoea [None]
  - Mental disorder [None]
  - Tremor [None]
  - Disturbance in attention [None]
  - Malaise [None]
  - Product quality issue [None]
  - Fatigue [None]
  - Weight decreased [None]
  - Decreased appetite [None]
  - Headache [None]
  - Exercise tolerance decreased [None]

NARRATIVE: CASE EVENT DATE: 20150613
